FAERS Safety Report 20050729 (Version 1)
Quarter: 2021Q4

REPORT INFORMATION
  Report Type: Report from Study
  Country: ZA (occurrence: ZA)
  Receive Date: 20211110
  Receipt Date: 20211110
  Transmission Date: 20220303
  Serious: Yes (Other)
  Sender: FDA-Public Use
  Company Number: ZA-BAYER-2021A244879

PATIENT

DRUGS (1)
  1. EYLEA [Suspect]
     Active Substance: AFLIBERCEPT
     Indication: Age-related macular degeneration
     Dosage: UNKNOWN TOTAL DOSES OF EYLEA
     Dates: start: 20190520

REACTIONS (3)
  - Cataract operation [Not Recovered/Not Resolved]
  - Lens disorder [Not Recovered/Not Resolved]
  - Ocular hypertension [Not Recovered/Not Resolved]
